FAERS Safety Report 8947639 (Version 1)
Quarter: 2012Q4

REPORT INFORMATION
  Report Type: 
  Country: DE (occurrence: DE)
  Receive Date: 20121205
  Receipt Date: 20121205
  Transmission Date: 20130627
  Serious: Yes (Other)
  Sender: FDA-Public Use
  Company Number: DE-ROCHE-1159693

PATIENT
  Age: 0 Year
  Sex: Female

DRUGS (4)
  1. DIAZEPAM [Suspect]
     Indication: SLEEP DISORDER
     Route: 064
  2. BROMAZEPAM [Concomitant]
     Indication: SLEEP DISORDER
     Route: 064
     Dates: start: 20110307, end: 20110307
  3. LAVENDER [Concomitant]
     Dosage: 80-160 mg/day
     Route: 065
  4. INSULIN [Concomitant]

REACTIONS (4)
  - Infantile apnoeic attack [Recovered/Resolved]
  - Drug withdrawal syndrome neonatal [Recovered/Resolved]
  - Feeding disorder neonatal [Recovered/Resolved]
  - Maternal exposure timing unspecified [Unknown]
